FAERS Safety Report 10189792 (Version 1)
Quarter: 2014Q2

REPORT INFORMATION
  Report Type: Spontaneous
  Country: US (occurrence: US)
  Receive Date: 20140522
  Receipt Date: 20140522
  Transmission Date: 20141212
  Serious: Yes (Hospitalization)
  Sender: FDA-Public Use
  Company Number: US-SANOFI-AVENTIS-2013SA050151

PATIENT
  Age: 77 Year
  Sex: Female

DRUGS (3)
  1. LANTUS SOLOSTAR [Suspect]
     Indication: PRODUCT USED FOR UNKNOWN INDICATION
     Dosage: DOSE:40 UNIT(S)
     Route: 058
  2. SOLOSTAR [Suspect]
  3. HUMALOG [Suspect]

REACTIONS (6)
  - Blood glucose increased [Unknown]
  - Speech disorder [Unknown]
  - Eye disorder [Unknown]
  - Insomnia [Unknown]
  - Asthenia [Unknown]
  - Blood glucose increased [Unknown]
